FAERS Safety Report 6591179-4 (Version None)
Quarter: 2010Q1

REPORT INFORMATION
  Report Type: 
  Country: None (occurrence: None)
  Receive Date: 20100219
  Receipt Date: 20100212
  Transmission Date: 20100710
  Serious: Yes (Life-Threatening, Hospitalization)
  Sender: FDA-Public Use
  Company Number: DE-ROCHE-683855

PATIENT
  Sex: Male
  Weight: 76.2 kg

DRUGS (2)
  1. RIBAVIRIN [Suspect]
     Dosage: DOSAGE FORM REPORTED AS 200 MG TABLET. DATE OF LAST DOSE PRIOR TO SAE: 05 FEB 2010.
     Route: 048
     Dates: start: 20091218, end: 20100205
  2. PEG-INTERFERON ALFA 2A (RO 25-8310) [Suspect]
     Dosage: DOSAGE FORM REPORTED AS SYRINGE. DATE OF LAST DOSE PRIOR TO SAE: 29 JANUARY 2010.
     Route: 058
     Dates: start: 20091218, end: 20100205

REACTIONS (1)
  - RASH [None]
